FAERS Safety Report 23882479 (Version 2)
Quarter: 2024Q2

REPORT INFORMATION
  Report Type: Other
  Country: US (occurrence: US)
  Receive Date: 20240522
  Receipt Date: 20240607
  Transmission Date: 20240716
  Serious: Yes (Hospitalization, Other)
  Sender: FDA-Public Use
  Company Number: US-INTERCEPT-PM2024001010

PATIENT
  Age: 60 Year
  Sex: Female

DRUGS (14)
  1. OCALIVA [Suspect]
     Active Substance: OBETICHOLIC ACID
     Indication: Primary biliary cholangitis
     Dosage: 5 MILLIGRAM, QD
     Route: 048
     Dates: start: 20161216
  2. OCALIVA [Suspect]
     Active Substance: OBETICHOLIC ACID
     Dosage: 10 MILLIGRAM, QD
     Route: 048
     Dates: start: 20221010, end: 202405
  3. URSODIOL [Concomitant]
     Active Substance: URSODIOL
  4. MELOXICAM [Concomitant]
     Active Substance: MELOXICAM
  5. HYDROCORTISONE [Concomitant]
     Active Substance: HYDROCORTISONE
  6. SUCRALFATE [Concomitant]
     Active Substance: SUCRALFATE
  7. TOPIRAMATE [Concomitant]
     Active Substance: TOPIRAMATE
  8. OMEPRAZOLE [Concomitant]
     Active Substance: DONEPEZIL HYDROCHLORIDE\OMEPRAZOLE\OMEPRAZOLE MAGNESIUM
  9. BENADRYL [Concomitant]
     Active Substance: DIPHENHYDRAMINE HYDROCHLORIDE
  10. PROPRANOLOL HYDROCHLORIDE [Concomitant]
     Active Substance: PROPRANOLOL HYDROCHLORIDE
  11. FAMOTIDINE [Concomitant]
     Active Substance: FAMOTIDINE
  12. SIMETHICONE (DIMETHICONE) [Concomitant]
     Active Substance: DIMETHICONE
  13. ONDANSETRON [Concomitant]
     Active Substance: ONDANSETRON
  14. ACETAMINOPHEN [Concomitant]
     Active Substance: ACETAMINOPHEN

REACTIONS (1)
  - Oesophageal varices haemorrhage [Not Recovered/Not Resolved]

NARRATIVE: CASE EVENT DATE: 20240401
